FAERS Safety Report 9244737 (Version 2)
Quarter: 2013Q2

REPORT INFORMATION
  Report Type: Spontaneous
  Country: BR (occurrence: BR)
  Receive Date: 20130422
  Receipt Date: 20130621
  Transmission Date: 20140414
  Serious: Yes (Other)
  Sender: FDA-Public Use
  Company Number: PHHY2013BR038485

PATIENT
  Age: 77 Year
  Sex: Female

DRUGS (15)
  1. ACLASTA [Suspect]
     Indication: OSTEITIS DEFORMANS
     Dosage: 5 MG/100 ML
     Route: 042
     Dates: start: 20130415
  2. OSTEONUTRI [Concomitant]
     Indication: OSTEITIS DEFORMANS
     Dosage: 600 MG,2 TABLET UNK
     Route: 048
  3. OSTEONUTRI [Concomitant]
     Dosage: 400 MG, 2 TABLETUNK
     Route: 048
  4. DEPURA [Concomitant]
     Indication: VITAMIN D DECREASED
     Dosage: 200 IU, 10 DROP DAILYUNK
     Route: 048
  5. DIGOXIN [Concomitant]
     Indication: CARDIAC DISORDER
     Dosage: 0.25 MG, QD, HALF TABLET
     Route: 048
  6. FUROSEMIDE [Concomitant]
     Indication: CARDIAC DISORDER
     Dosage: 40 MG, QD, 2 TABLET
     Route: 048
  7. APRESOLIN [Concomitant]
     Indication: CARDIAC DISORDER
     Dosage: 25 MG, QD, 2 TABLET
     Route: 048
  8. SUSTRATE [Concomitant]
     Indication: CARDIAC DISORDER
     Dosage: 100 MG, QD,2 TABLET
     Route: 048
  9. AMIODARONE [Concomitant]
     Indication: CARDIAC DISORDER
     Dosage: 200 MG, QD, 1 TABLET
     Route: 048
  10. DIVELOL [Concomitant]
     Indication: CARDIAC DISORDER
     Dosage: 12.5 MG, QD, 2 TABLET
     Route: 048
  11. ALDACTONE [Concomitant]
     Indication: CARDIAC DISORDER
     Dosage: 25 MG, QD, 1TABLET
     Route: 048
  12. CARVEDILOL [Concomitant]
     Indication: CARDIAC DISORDER
     Dosage: 12.5 MG, QD,2 TABLET
     Route: 048
  13. INSULIN [Concomitant]
     Indication: DIABETES MELLITUS
     Dosage: 60 IU, UNK
  14. METFORMIN [Concomitant]
     Indication: DIABETES MELLITUS
     Dosage: 850 MG, QD, 1 TABLET
     Route: 048
  15. SIMVASTATIN [Concomitant]
     Indication: DIABETES MELLITUS
     Dosage: 20 MG, QD, 1 TABLET
     Route: 048

REACTIONS (3)
  - Pyrexia [Not Recovered/Not Resolved]
  - Arthralgia [Not Recovered/Not Resolved]
  - Pain in extremity [Not Recovered/Not Resolved]
